FAERS Safety Report 25896641 (Version 1)
Quarter: 2025Q4

REPORT INFORMATION
  Report Type: Spontaneous
  Country: US (occurrence: None)
  Receive Date: 20251008
  Receipt Date: 20251008
  Transmission Date: 20260117
  Serious: Yes (Hospitalization)
  Sender: FDA-CTU
  Company Number: None

PATIENT
  Age: 78 Year
  Sex: Female

DRUGS (11)
  1. PULMOZYME [Suspect]
     Active Substance: DORNASE ALFA
     Indication: Infective pulmonary exacerbation of cystic fibrosis
     Dosage: FREQUENCY : DAILY;?
     Route: 055
     Dates: start: 20181115
  2. ADVAIR DISKU AER 100/50 [Concomitant]
  3. COMPLETE FORM PROBIOTIC [Concomitant]
  4. CREON CAP 12000UNT [Concomitant]
  5. EFFEXOR TAB 37.5MG [Concomitant]
  6. FUROSEMIDE POW [Concomitant]
  7. GABAPENTIN [Concomitant]
     Active Substance: GABAPENTIN
  8. LORTAB TAB 7.5-500 [Concomitant]
  9. MIRTAZAPINE TAB 15MG [Concomitant]
  10. NASONEX [Concomitant]
     Active Substance: MOMETASONE FUROATE
  11. OXAZEPAM CAP 30MG [Concomitant]

REACTIONS (6)
  - Pneumonia [None]
  - Dizziness [None]
  - Loss of consciousness [None]
  - Product odour abnormal [None]
  - Poor quality product administered [None]
  - Dyskinesia [None]

NARRATIVE: CASE EVENT DATE: 20250925
